FAERS Safety Report 4274203-3 (Version None)
Quarter: 2004Q1

REPORT INFORMATION
  Report Type: 
  Country: None (occurrence: None)
  Receive Date: 20040115
  Receipt Date: 20031230
  Transmission Date: 20041129
  Serious: Yes (Hospitalization)
  Sender: FDA-Public Use
  Company Number: 200314950FR

PATIENT
  Age: 49 Year
  Sex: Female
  Weight: 50 kg

DRUGS (8)
  1. RIFAMPICIN [Suspect]
     Indication: OSTEOARTHRITIS
     Dosage: 600 MG QD PO
     Route: 048
     Dates: start: 20031030, end: 20031121
  2. OXACILLIN [Concomitant]
  3. ACETAMINOPHEN [Concomitant]
  4. DEXTROPROPOXYPHENE HYDROCHLORIDE (DIANTALVIC) [Concomitant]
  5. HEPARIN-FRACTION [Concomitant]
  6. SODIUM SALT (LOVENOX) [Concomitant]
  7. FERROUS FUMARATE (FUMAFER) [Concomitant]
  8. ZOLPIDEM TARTRATE [Concomitant]

REACTIONS (3)
  - AGRANULOCYTOSIS [None]
  - HAEMOGLOBIN DECREASED [None]
  - NEUTROPENIA [None]
